FAERS Safety Report 25869007 (Version 1)
Quarter: 2025Q3

REPORT INFORMATION
  Report Type: Spontaneous
  Country: US (occurrence: None)
  Receive Date: 20250930
  Receipt Date: 20250930
  Transmission Date: 20251020
  Serious: Yes (Hospitalization)
  Sender: FDA-CTU
  Company Number: None

PATIENT
  Sex: Female

DRUGS (9)
  1. TADLIQ [Suspect]
     Active Substance: TADALAFIL
     Dosage: FREQUENCY : DAILY;?
     Route: 048
     Dates: start: 20250416
  2. ACETAMINOPHEN [Concomitant]
     Active Substance: ACETAMINOPHEN
  3. ENOXAPARIN [Concomitant]
     Active Substance: ENOXAPARIN
  4. FAMOTIDINE SUS [Concomitant]
  5. FERROUS SULF DRO [Concomitant]
  6. POLYETHYLENE GLYCOL [Concomitant]
     Active Substance: POLYETHYLENE GLYCOL
  7. PROPRANOLOL SO [Concomitant]
  8. SILDENAFIL SUS [Concomitant]
  9. SPIRONO/HCTZ [Concomitant]

REACTIONS (1)
  - COVID-19 [None]
